FAERS Safety Report 9039399 (Version 1)
Quarter: 2013Q1

REPORT INFORMATION
  Report Type: Report from Study
  Country: US (occurrence: US)
  Receive Date: 20130129
  Receipt Date: 20130129
  Transmission Date: 20140127
  Serious: No
  Sender: FDA-Public Use
  Company Number: US-ABBOTT-12P-163-0909106-00

PATIENT
  Age: 51 Year
  Sex: Female

DRUGS (28)
  1. HUMIRA 40 MG/0.8 ML PEN [Suspect]
     Indication: CROHN^S DISEASE
     Dosage: LOADING DOSE
     Route: 058
     Dates: start: 20120128, end: 20120128
  2. HUMIRA 40 MG/0.8 ML PEN [Suspect]
     Dosage: LOADING DOSE
     Route: 058
     Dates: start: 20120211, end: 20120211
  3. HUMIRA 40 MG/0.8 ML PEN [Suspect]
     Route: 058
     Dates: start: 20120225
  4. CRESTOR [Concomitant]
     Indication: BLOOD CHOLESTEROL INCREASED
  5. BIDIL [Concomitant]
     Indication: CARDIAC DISORDER
     Dosage: TID
  6. VALIUM [Concomitant]
     Indication: ANXIETY
     Dosage: UP TO 4 DAILY
  7. ZANAFLEX [Concomitant]
     Indication: MUSCLE SPASMS
     Dosage: UP TO 4 DAILY
  8. COREG [Concomitant]
     Indication: CARDIAC DISORDER
     Dosage: BID
  9. MS CONTIN [Concomitant]
     Indication: PAIN MANAGEMENT
     Dosage: UP TO 3 DAILY
  10. DILAUDID [Concomitant]
     Indication: PAIN
     Dosage: 2 TABS UP TO 4X DAILY
  11. DIGOXIN [Concomitant]
     Indication: CARDIAC DISORDER
  12. ZOLOFT [Concomitant]
     Indication: DEPRESSION
  13. LASIX [Concomitant]
     Indication: CARDIAC FAILURE CONGESTIVE
     Dosage: 1 DAILY UNLESS SHE GAINS FORE THAN 2 LBS
  14. ALDACTONE [Concomitant]
     Indication: CARDIAC FAILURE CONGESTIVE
  15. ESTRATEST [Concomitant]
     Indication: HYSTERECTOMY
     Dosage: ALTERNATES THAT WITH ESTRACE
  16. ESTRACE [Concomitant]
     Indication: HYSTERECTOMY
     Dosage: ALTERNATES
  17. PROTONIX [Concomitant]
     Indication: PROPHYLAXIS
  18. AMBIEN [Concomitant]
     Indication: INSOMNIA
     Dosage: AT HS
  19. ATARAX [Concomitant]
     Indication: ECZEMA
     Dosage: PRN
  20. ZOFRAN [Concomitant]
     Indication: NAUSEA
     Dosage: PRN
  21. PHENERGAN [Concomitant]
     Indication: NAUSEA
     Dosage: PRN
  22. TRANSDERM-SCOP [Concomitant]
     Indication: VERTIGO
     Dosage: TRANSDERMAL PATCH BEHIND EAR PRN
  23. D 3 [Concomitant]
     Indication: PRODUCT USED FOR UNKNOWN INDICATION
     Dosage: DAILY
  24. ASA [Concomitant]
     Indication: CARDIAC DISORDER
  25. B 12 [Concomitant]
     Indication: PRODUCT USED FOR UNKNOWN INDICATION
     Dosage: DAILY
  26. NIACIN [Concomitant]
     Indication: PRODUCT USED FOR UNKNOWN INDICATION
     Dosage: 2 DAILY
  27. MAGOX [Concomitant]
     Indication: PRODUCT USED FOR UNKNOWN INDICATION
     Dosage: 2 DAILY
  28. VITAMIN C [Concomitant]
     Indication: PRODUCT USED FOR UNKNOWN INDICATION
     Dosage: DAILY

REACTIONS (10)
  - Frequent bowel movements [Not Recovered/Not Resolved]
  - Abdominal distension [Not Recovered/Not Resolved]
  - Crohn^s disease [Not Recovered/Not Resolved]
  - Diarrhoea [Not Recovered/Not Resolved]
  - Abdominal pain [Not Recovered/Not Resolved]
  - Nausea [Not Recovered/Not Resolved]
  - Nausea [Not Recovered/Not Resolved]
  - Muscle spasms [Not Recovered/Not Resolved]
  - Frequent bowel movements [Not Recovered/Not Resolved]
  - Hyperphagia [Unknown]
